FAERS Safety Report 13528817 (Version 1)
Quarter: 2017Q2

REPORT INFORMATION
  Report Type: Other
  Country: GB (occurrence: GB)
  Receive Date: 20170509
  Receipt Date: 20170509
  Transmission Date: 20170830
  Serious: Yes (Life-Threatening, Hospitalization, Disabling, Other)
  Sender: FDA-Public Use
  Company Number: GB-PERRIGO-17GB003583

PATIENT

DRUGS (1)
  1. IBUPROFEN. [Suspect]
     Active Substance: IBUPROFEN
     Indication: PERIPHERAL SWELLING
     Dosage: WITH FOOD
     Route: 048
     Dates: start: 20130415, end: 20130418

REACTIONS (6)
  - Syncope [Unknown]
  - Haematemesis [Recovered/Resolved with Sequelae]
  - Gastric ulcer perforation [Recovered/Resolved with Sequelae]
  - Abdominal pain upper [Unknown]
  - Dizziness [Unknown]
  - Rectal haemorrhage [Unknown]

NARRATIVE: CASE EVENT DATE: 20130416
